FAERS Safety Report 23156332 (Version 1)
Quarter: 2023Q4

REPORT INFORMATION
  Report Type: Spontaneous
  Country: US (occurrence: US)
  Receive Date: 20231107
  Receipt Date: 20231107
  Transmission Date: 20240109
  Serious: Yes (Other)
  Sender: FDA-Public Use
  Company Number: US-AUROBINDO-AUR-APL-2023-067441

PATIENT
  Age: 77 Year
  Sex: Female

DRUGS (2)
  1. AMANTADINE [Suspect]
     Active Substance: AMANTADINE
     Indication: Parkinson^s disease
     Dosage: 200 MILLIGRAM, ONCE A DAY
     Route: 065
  2. LEVODOPA [Concomitant]
     Active Substance: LEVODOPA
     Indication: Product used for unknown indication
     Dosage: 500 MILLIGRAM, ONCE A DAY
     Route: 065

REACTIONS (6)
  - Myoclonus [Recovered/Resolved]
  - Speech disorder [Unknown]
  - Dyskinesia [Unknown]
  - Oedema [Unknown]
  - Cognitive disorder [Unknown]
  - Condition aggravated [Unknown]
